FAERS Safety Report 5874255-0 (Version None)
Quarter: 2008Q3

REPORT INFORMATION
  Report Type: 
  Country: None (occurrence: None)
  Receive Date: 20080908
  Receipt Date: 20080826
  Transmission Date: 20090109
  Serious: Yes (Death, Hospitalization, Other)
  Sender: FDA-Public Use
  Company Number: GB-ELI_LILLY_AND_COMPANY-GB200802006894

PATIENT
  Sex: Male
  Weight: 102 kg

DRUGS (7)
  1. GEMZAR [Suspect]
     Indication: NON-SMALL CELL LUNG CANCER STAGE IV
     Dosage: 2400 MG, UNKNOWN
     Route: 042
     Dates: start: 20080214, end: 20080214
  2. CARBOPLATIN [Concomitant]
     Indication: NON-SMALL CELL LUNG CANCER STAGE IV
     Dosage: 365 MG, UNKNOWN
     Route: 042
     Dates: start: 20080214, end: 20080222
  3. NSAID'S [Concomitant]
     Dosage: UNK, UNKNOWN
     Route: 065
  4. IBUPROFEN [Concomitant]
     Dosage: UNK, UNKNOWN
     Route: 065
  5. DEXAMETHASONE [Concomitant]
     Indication: VOMITING
     Dosage: 4 MG, 2/D
     Route: 048
     Dates: start: 20080222, end: 20080225
  6. ONDANSETRON [Concomitant]
     Indication: VOMITING
     Dosage: 8 MG, 2/D
     Route: 048
     Dates: start: 20080222, end: 20080224
  7. ACETAMINOPHEN [Concomitant]
     Dosage: UNK, UNKNOWN
     Route: 065

REACTIONS (4)
  - DEEP VEIN THROMBOSIS [None]
  - HAEMOLYTIC URAEMIC SYNDROME [None]
  - LOSS OF CONSCIOUSNESS [None]
  - PULMONARY EMBOLISM [None]
